FAERS Safety Report 5200461-4 (Version None)
Quarter: 2007Q1

REPORT INFORMATION
  Report Type: 
  Country: None (occurrence: None)
  Receive Date: 20070105
  Receipt Date: 20070103
  Transmission Date: 20070707
  Serious: Yes (Hospitalization, Disabling)
  Sender: FDA-Public Use
  Company Number: FR-MERCK-0603FRA00041

PATIENT
  Age: 72 Year
  Sex: Male

DRUGS (3)
  1. SINGULAIR [Suspect]
     Indication: ASTHMA
     Route: 048
     Dates: start: 20050919, end: 20051220
  2. SIMVASTATIN [Concomitant]
     Indication: HYPERCHOLESTEROLAEMIA
     Route: 048
  3. CORTISONE [Concomitant]
     Indication: ASTHMA PROPHYLAXIS

REACTIONS (1)
  - AMYOTROPHIC LATERAL SCLEROSIS [None]
